FAERS Safety Report 9226514 (Version 2)
Quarter: 2013Q4

REPORT INFORMATION
  Report Type: Spontaneous
  Country: TR (occurrence: TR)
  Receive Date: 20130412
  Receipt Date: 20131018
  Transmission Date: 20140711
  Serious: Yes (Other)
  Sender: FDA-Public Use
  Company Number: TR-AMGEN-TURSP2013025248

PATIENT
  Age: 9 Year
  Sex: Female

DRUGS (2)
  1. ENBREL [Suspect]
     Indication: PSORIATIC ARTHROPATHY
     Dosage: 17.5 MG, MONTHLY
     Route: 058
     Dates: start: 20110204, end: 2013
  2. ENBREL [Suspect]
     Dosage: UNK
     Route: 065
     Dates: end: 201308

REACTIONS (2)
  - Tooth disorder [Recovered/Resolved]
  - Tooth infection [Recovered/Resolved]
